FAERS Safety Report 10178304 (Version 2)
Quarter: 2014Q2

REPORT INFORMATION
  Report Type: Report from Study
  Country: CA (occurrence: CA)
  Receive Date: 20140519
  Receipt Date: 20140519
  Transmission Date: 20141212
  Serious: Yes (Other)
  Sender: FDA-Public Use
  Company Number: CA-ROCHE-1356482

PATIENT
  Sex: Female
  Weight: 62.6 kg

DRUGS (12)
  1. ACTEMRA [Suspect]
     Indication: RHEUMATOID ARTHRITIS
     Route: 042
     Dates: start: 20130423, end: 20131018
  2. TYLENOL #3 (CANADA) [Concomitant]
  3. HYDROMORPHONE [Concomitant]
  4. COLACE [Concomitant]
  5. GABAPENTIN [Concomitant]
  6. LEFLUNOMIDE [Concomitant]
  7. MELOXICAM [Concomitant]
  8. PREDNISONE [Concomitant]
  9. LACTULOSE [Concomitant]
     Route: 065
  10. ZOFRAN [Concomitant]
  11. SENOKOT [Concomitant]
  12. BISACODYL SUPPOSITORY [Concomitant]

REACTIONS (3)
  - Ulcer [Not Recovered/Not Resolved]
  - Wound [Not Recovered/Not Resolved]
  - Infection [Unknown]
